FAERS Safety Report 10201632 (Version 1)
Quarter: 2014Q2

REPORT INFORMATION
  Report Type: Spontaneous
  Country: US (occurrence: US)
  Receive Date: 20140528
  Receipt Date: 20140528
  Transmission Date: 20141212
  Serious: No
  Sender: FDA-Public Use
  Company Number: US-TEVA-484511USA

PATIENT
  Age: 25 Year
  Sex: Female
  Weight: 58.11 kg

DRUGS (1)
  1. PARAGARD 380A [Suspect]
     Indication: CONTRACEPTION
     Route: 015
     Dates: start: 20140110, end: 20140523

REACTIONS (7)
  - Vaginal haemorrhage [Recovered/Resolved]
  - Menstruation delayed [Recovered/Resolved]
  - Metrorrhagia [Recovered/Resolved]
  - Menometrorrhagia [Not Recovered/Not Resolved]
  - Dysmenorrhoea [Unknown]
  - Pelvic pain [Recovered/Resolved]
  - Device expulsion [Recovered/Resolved]
